FAERS Safety Report 17224524 (Version 1)
Quarter: 2020Q1

REPORT INFORMATION
  Report Type: Spontaneous
  Country: US (occurrence: US)
  Receive Date: 20200102
  Receipt Date: 20200102
  Transmission Date: 20200409
  Serious: Yes (Death)
  Sender: FDA-Public Use
  Company Number: NVSC2019US083753

PATIENT
  Age: 69 Year
  Sex: Female

DRUGS (1)
  1. ADALIMUMAB [Suspect]
     Active Substance: ADALIMUMAB
     Indication: CAUDA EQUINA SYNDROME
     Dosage: UNK (A SHORT 6-WEEK COURSE)
     Route: 065

REACTIONS (3)
  - Drug ineffective [Unknown]
  - Pancreatic carcinoma metastatic [Fatal]
  - Product use in unapproved indication [Unknown]
